FAERS Safety Report 9351159 (Version 3)
Quarter: 2013Q3

REPORT INFORMATION
  Report Type: Spontaneous
  Country: US (occurrence: US)
  Receive Date: 20130617
  Receipt Date: 20130725
  Transmission Date: 20140515
  Serious: No
  Sender: FDA-Public Use
  Company Number: US-VERTEX PHARMACEUTICALS INC-2013-007112

PATIENT
  Sex: Male
  Weight: 86 kg

DRUGS (7)
  1. INCIVEK [Suspect]
     Indication: HEPATITIS C
     Dosage: 750 MG, TID
     Route: 048
     Dates: start: 20130525
  2. RIBAPAK [Suspect]
     Indication: HEPATITIS C
     Dosage: 600 MG, BID
     Dates: start: 20130525
  3. PEGASYS [Suspect]
     Indication: HEPATITIS C
     Dosage: 180 ?G, QW
     Dates: start: 20130525
  4. METOPROLOL SUCCINATE [Concomitant]
     Dosage: 25 MG, QD
  5. WARFARIN [Concomitant]
     Dosage: AS DIRECTED
  6. JANUMET [Concomitant]
  7. VITAMIN B COMPLEX [Concomitant]

REACTIONS (3)
  - Dry mouth [Recovered/Resolved]
  - Rash vesicular [Not Recovered/Not Resolved]
  - Pruritus [Unknown]
